FAERS Safety Report 18756704 (Version 1)
Quarter: 2021Q1

REPORT INFORMATION
  Report Type: Spontaneous
  Country: US (occurrence: US)
  Receive Date: 20210118
  Receipt Date: 20210118
  Transmission Date: 20210419
  Serious: Yes (Death)
  Sender: FDA-Public Use
  Company Number: None

PATIENT
  Age: 84 Year
  Sex: Male
  Weight: 71.21 kg

DRUGS (10)
  1. PROCHLORPERAZINE. [Suspect]
     Active Substance: PROCHLORPERAZINE
     Indication: BONE CANCER
     Route: 048
     Dates: start: 20201019, end: 20210118
  2. HUMALOG [Concomitant]
     Active Substance: INSULIN LISPRO
  3. LANTUS [Concomitant]
     Active Substance: INSULIN GLARGINE
  4. ENALAPRIL MALEATE. [Concomitant]
     Active Substance: ENALAPRIL MALEATE
  5. MELATONIN [Concomitant]
     Active Substance: MELATONIN
  6. PRAVASTATIN. [Concomitant]
     Active Substance: PRAVASTATIN
  7. ABIRATERONE. [Suspect]
     Active Substance: ABIRATERONE ACETATE
     Indication: BONE CANCER
     Route: 048
     Dates: start: 20201019, end: 20210118
  8. GABAPENTIN. [Concomitant]
     Active Substance: GABAPENTIN
  9. SENOKOT [Concomitant]
     Active Substance: SENNOSIDES
  10. LUPRON DEPOT [Concomitant]
     Active Substance: LEUPROLIDE ACETATE

REACTIONS (1)
  - Death [None]

NARRATIVE: CASE EVENT DATE: 20210118
